FAERS Safety Report 11740172 (Version 2)
Quarter: 2015Q4

REPORT INFORMATION
  Report Type: Spontaneous
  Country: US (occurrence: US)
  Receive Date: 20151110
  Receipt Date: 20151120
  Transmission Date: 20160304
  Serious: No
  Sender: FDA-Public Use
  Company Number: US-ELI_LILLY_AND_COMPANY-US201205005037

PATIENT
  Sex: Male

DRUGS (1)
  1. FORTEO [Suspect]
     Active Substance: TERIPARATIDE
     Indication: OSTEOPOROSIS
     Dosage: 20 UG, QD

REACTIONS (5)
  - Dry skin [Not Recovered/Not Resolved]
  - Pruritus [Unknown]
  - Rash erythematous [Unknown]
  - Injection site rash [Unknown]
  - Erythema [Not Recovered/Not Resolved]
